FAERS Safety Report 6441690-1 (Version None)
Quarter: 2009Q4

REPORT INFORMATION
  Report Type: 
  Country: None (occurrence: None)
  Receive Date: 20091116
  Receipt Date: 20091109
  Transmission Date: 20100525
  Serious: Yes (Other)
  Sender: FDA-Public Use
  Company Number: US-MERCK-0910USA03551

PATIENT
  Age: 23 Year
  Sex: Female
  Weight: 98 kg

DRUGS (4)
  1. SINGULAIR [Suspect]
     Indication: RHINITIS ALLERGIC
     Route: 048
     Dates: start: 20090101, end: 20090101
  2. SINGULAIR [Suspect]
     Indication: ASTHMA
     Route: 048
     Dates: start: 20090101, end: 20090101
  3. ALLEGRA D 24 HOUR [Concomitant]
     Indication: RHINITIS ALLERGIC
     Route: 048
  4. NASONEX [Concomitant]
     Indication: RHINITIS ALLERGIC
     Route: 065

REACTIONS (2)
  - HOMICIDAL IDEATION [None]
  - MOOD ALTERED [None]
